FAERS Safety Report 6876269-0 (Version None)
Quarter: 2010Q3

REPORT INFORMATION
  Report Type: 
  Country: None (occurrence: None)
  Receive Date: 20100727
  Receipt Date: 20100719
  Transmission Date: 20110219
  Serious: Yes (Life-Threatening)
  Sender: FDA-Public Use
  Company Number: B0635325A

PATIENT
  Age: 79 Year
  Sex: Male

DRUGS (14)
  1. AVODART [Suspect]
     Indication: BENIGN PROSTATIC HYPERPLASIA
     Dates: start: 20070824
  2. TAMSULOSIN HCL [Concomitant]
     Route: 065
     Dates: start: 20070824, end: 20071108
  3. HYTRINE [Concomitant]
     Route: 065
     Dates: start: 20071109
  4. BIOFLOR [Concomitant]
     Route: 065
     Dates: start: 20080814
  5. OPALMON [Concomitant]
     Dates: start: 20080814, end: 20081110
  6. PANTOPRAZOLE [Concomitant]
     Route: 065
     Dates: start: 20080814, end: 20081110
  7. ERDOS [Concomitant]
     Route: 065
     Dates: start: 20090514
  8. SELBEX [Concomitant]
     Route: 065
     Dates: start: 20090514, end: 20090528
  9. ACETOMENAPHTHONE [Concomitant]
     Dates: start: 20090514
  10. VALIUM [Concomitant]
     Route: 065
     Dates: start: 20090514
  11. ULTRACET [Concomitant]
     Route: 065
     Dates: start: 20090602
  12. MACPERAN [Concomitant]
     Route: 065
     Dates: start: 20090714
  13. GASMOTIN [Concomitant]
     Route: 065
     Dates: start: 20090714
  14. COUGHING SYRUP [Concomitant]
     Dates: start: 20090714

REACTIONS (1)
  - LUNG NEOPLASM MALIGNANT [None]
